FAERS Safety Report 8251513-6 (Version None)
Quarter: 2012Q2

REPORT INFORMATION
  Report Type: 
  Country: None (occurrence: None)
  Receive Date: 20120402
  Receipt Date: 20120329
  Transmission Date: 20120825
  Serious: Yes (Hospitalization)
  Sender: FDA-Public Use
  Company Number: FR-GILEAD-2012-0052972

PATIENT
  Sex: Female

DRUGS (8)
  1. INDAPAMIDE [Concomitant]
     Indication: HYPERTENSION
     Dosage: UNK
     Dates: end: 20120218
  2. ATRIPLA [Suspect]
     Indication: HIV INFECTION
     Dosage: 1 DF, QD
     Route: 048
     Dates: end: 20120220
  3. EZETIMIBE [Concomitant]
  4. ACTONEL [Concomitant]
     Dosage: UNK
     Dates: end: 20120220
  5. TARKA [Concomitant]
     Indication: HYPERTENSION
     Dosage: UNK
     Dates: end: 20120218
  6. MEDIATENSYL                        /00631801/ [Concomitant]
     Indication: HYPERTENSION
     Dosage: UNK
     Dates: end: 20120220
  7. PLAVIX [Concomitant]
     Dosage: UNK
     Dates: end: 20120220
  8. IMOVANE [Concomitant]

REACTIONS (1)
  - RENAL TUBULAR DISORDER [None]
